FAERS Safety Report 9734864 (Version 1)
Quarter: 2013Q4

REPORT INFORMATION
  Report Type: Spontaneous
  Country: US (occurrence: US)
  Receive Date: 20131206
  Receipt Date: 20131206
  Transmission Date: 20140711
  Serious: Yes (Hospitalization)
  Sender: FDA-Public Use
  Company Number: US-JNJFOC-20131118140

PATIENT
  Sex: Female
  Weight: 90.72 kg

DRUGS (8)
  1. INVEGA SUSTENNA [Suspect]
     Indication: PSYCHOTIC DISORDER
     Route: 030
     Dates: start: 2013, end: 2013
  2. INVEGA SUSTENNA [Suspect]
     Indication: BIPOLAR DISORDER
     Route: 030
     Dates: start: 2013, end: 2013
  3. LOXAPINE [Concomitant]
     Route: 065
     Dates: start: 2013
  4. ZOLOFT [Concomitant]
     Route: 065
     Dates: start: 2013
  5. COGENTIN [Concomitant]
     Route: 065
     Dates: start: 2013
  6. METOPROLOL [Concomitant]
     Route: 065
     Dates: start: 2013
  7. CLONAZEPAM [Concomitant]
     Route: 065
     Dates: start: 2013
  8. LAMOTRIGINE [Concomitant]
     Route: 065
     Dates: start: 2013

REACTIONS (3)
  - Investigation [Recovered/Resolved]
  - Panic attack [Recovered/Resolved]
  - Drug ineffective [Unknown]
